FAERS Safety Report 16053317 (Version 1)
Quarter: 2019Q1

REPORT INFORMATION
  Report Type: Spontaneous
  Country: IT (occurrence: IT)
  Receive Date: 20190308
  Receipt Date: 20190308
  Transmission Date: 20190418
  Serious: Yes (Other)
  Sender: FDA-Public Use
  Company Number: IT-TEVA-2019-IT-1021055

PATIENT
  Age: 22 Year
  Sex: Female

DRUGS (5)
  1. STILNOX [Suspect]
     Active Substance: ZOLPIDEM TARTRATE
     Indication: DRUG ABUSE
     Route: 048
     Dates: start: 20190130, end: 20190130
  2. ALPRAZOLAM. [Suspect]
     Active Substance: ALPRAZOLAM
     Indication: DRUG ABUSE
     Route: 048
     Dates: start: 20190130, end: 20190130
  3. BRUFEN [Suspect]
     Active Substance: IBUPROFEN
     Indication: DRUG ABUSE
     Route: 048
     Dates: start: 20190130, end: 20190130
  4. ACETYLSALICYLIC ACID [Suspect]
     Active Substance: ASPIRIN
     Indication: DRUG ABUSE
     Route: 048
     Dates: start: 20190130, end: 20190130
  5. ZOLOFT [Suspect]
     Active Substance: SERTRALINE HYDROCHLORIDE
     Indication: DRUG ABUSE
     Route: 048
     Dates: start: 20190130, end: 20190130

REACTIONS (4)
  - Poisoning [Unknown]
  - Headache [Unknown]
  - Urinary retention [Unknown]
  - Drug abuse [Unknown]

NARRATIVE: CASE EVENT DATE: 20190130
